FAERS Safety Report 5805389-4 (Version None)
Quarter: 2008Q3

REPORT INFORMATION
  Report Type: 
  Country: None (occurrence: None)
  Receive Date: 20080710
  Receipt Date: 20080707
  Transmission Date: 20090109
  Serious: Yes (Other)
  Sender: FDA-Public Use
  Company Number: JP-BRISTOL-MYERS SQUIBB COMPANY-14016521

PATIENT
  Age: 22 Year
  Sex: Male

DRUGS (4)
  1. VEPESID [Suspect]
     Indication: TESTICULAR CANCER METASTATIC
     Dosage: ADMINISTERED ON DAYS 1 TO 5
     Route: 041
  2. BRIPLATIN [Suspect]
     Indication: TESTICULAR CANCER METASTATIC
     Dosage: ADMINISTERED ON DAYS 1 TO 5
     Route: 041
  3. BLEOMYCIN SULFATE [Suspect]
     Indication: GERM CELL CANCER
  4. BLEO [Concomitant]

REACTIONS (3)
  - PROSTATIC ABSCESS [None]
  - PYREXIA [None]
  - WHITE BLOOD CELL COUNT DECREASED [None]
